FAERS Safety Report 21228766 (Version 2)
Quarter: 2022Q4

REPORT INFORMATION
  Report Type: Spontaneous
  Country: US (occurrence: US)
  Receive Date: 20220818
  Receipt Date: 20221129
  Transmission Date: 20230112
  Serious: No
  Sender: FDA-Public Use
  Company Number: US-BRISTOL-MYERS SQUIBB COMPANY-2022-092082

PATIENT
  Age: 64 Year
  Sex: Female

DRUGS (1)
  1. ORENCIA [Suspect]
     Active Substance: ABATACEPT
     Indication: Rheumatoid arthritis
     Dosage: STRENGTH: 250 MG/VL
     Route: 042
     Dates: start: 20220114

REACTIONS (5)
  - Blood glucose increased [Unknown]
  - Influenza like illness [Unknown]
  - Chills [Unknown]
  - Vomiting [Unknown]
  - Hyperhidrosis [Unknown]
